FAERS Safety Report 23788571 (Version 3)
Quarter: 2024Q2

REPORT INFORMATION
  Report Type: Report from Study
  Country: FR (occurrence: None)
  Receive Date: 20240426
  Receipt Date: 20240503
  Transmission Date: 20240715
  Serious: Yes (Life-Threatening, Hospitalization, Other)
  Sender: FDA-Public Use
  Company Number: 2024A096881

PATIENT
  Sex: Female
  Weight: 80 kg

DRUGS (1)
  1. IMFINZI [Suspect]
     Active Substance: DURVALUMAB
     Indication: Bile duct cancer
     Dosage: UNKNOWN
     Route: 042

REACTIONS (12)
  - Cardiotoxicity [Unknown]
  - Pneumonia aspiration [Unknown]
  - Musculoskeletal toxicity [Unknown]
  - Muscle strength abnormal [Unknown]
  - Diplopia [Unknown]
  - Eyelid ptosis [Unknown]
  - Toxicity to various agents [Unknown]
  - Off label use [Unknown]
  - Dysphagia [Unknown]
  - Asthenia [Unknown]
  - Dysphonia [Unknown]
  - Myalgia [Unknown]
